FAERS Safety Report 6472171-7 (Version None)
Quarter: 2009Q4

REPORT INFORMATION
  Report Type: 
  Country: None (occurrence: None)
  Receive Date: 20091201
  Receipt Date: 20091119
  Transmission Date: 20100525
  Serious: Yes (Other)
  Sender: FDA-Public Use
  Company Number: 2009EU004402

PATIENT
  Age: 42 Year
  Sex: Male

DRUGS (13)
  1. PROGRAF [Suspect]
     Indication: RENAL TRANSPLANT
     Dosage: 1.5 MG, QOD, ORAL, 2 MG, QOD, ORAL, 3 MG, QOD, ORAL,
     Route: 048
     Dates: end: 20090920
  2. PROGRAF [Suspect]
     Indication: RENAL TRANSPLANT
     Dosage: 1.5 MG, QOD, ORAL, 2 MG, QOD, ORAL, 3 MG, QOD, ORAL,
     Route: 048
     Dates: start: 20090920, end: 20091001
  3. PROGRAF [Suspect]
     Indication: RENAL TRANSPLANT
     Dosage: 1.5 MG, QOD, ORAL, 2 MG, QOD, ORAL, 3 MG, QOD, ORAL,
     Route: 048
     Dates: start: 20091002
  4. CHAMPIX [Suspect]
     Indication: SMOKING CESSATION THERAPY
     Dosage: 1 DF, UID/QD, ORAL, 2 DF, UID/QD, ORAL
     Route: 048
     Dates: start: 20090909, end: 20090919
  5. CHAMPIX [Suspect]
     Indication: SMOKING CESSATION THERAPY
     Dosage: 1 DF, UID/QD, ORAL, 2 DF, UID/QD, ORAL
     Route: 048
     Dates: start: 20090920, end: 20091005
  6. CELLCEPT [Concomitant]
  7. FOLIC ACID [Concomitant]
  8. NEPHROTRANS (SODIUM BICARBONATE) [Concomitant]
  9. TENORMIN [Concomitant]
  10. COSAAR (LOSARTAN POTASSIUM) [Concomitant]
  11. EZETROL (EZETIMIBE) [Concomitant]
  12. PRAVALOTIN (PRAVASTATIN SODIUM) [Concomitant]
  13. NORVASC [Concomitant]

REACTIONS (2)
  - DRUG INTERACTION [None]
  - DRUG LEVEL BELOW THERAPEUTIC [None]
